FAERS Safety Report 5320130-X (Version None)
Quarter: 2007Q2

REPORT INFORMATION
  Report Type: 
  Country: None (occurrence: None)
  Receive Date: 20070503
  Receipt Date: 20070423
  Transmission Date: 20071010
  Serious: Yes (Life-Threatening, Hospitalization)
  Sender: FDA-Public Use
  Company Number: GXKR2007US03715

PATIENT
  Age: 28 Year
  Sex: Male

DRUGS (2)
  1. PARACETAMOL (NGX)(PARACETAMOL) TABLET, 500MG [Suspect]
     Dosage: UP TO 250 G, ORAL
     Route: 048
  2. IBUPROFEN [Suspect]
     Dosage: ORAL
     Route: 048

REACTIONS (9)
  - DIALYSIS [None]
  - DRUG INTERACTION [None]
  - HEPATIC FAILURE [None]
  - LIVER TRANSPLANT [None]
  - METABOLIC ACIDOSIS [None]
  - NECROTISING COLITIS [None]
  - OVERDOSE [None]
  - RENAL FAILURE ACUTE [None]
  - RHABDOMYOLYSIS [None]
